FAERS Safety Report 11154609 (Version 1)
Quarter: 2015Q2

REPORT INFORMATION
  Report Type: Spontaneous
  Country: US (occurrence: US)
  Receive Date: 20150602
  Receipt Date: 20150602
  Transmission Date: 20150821
  Serious: No
  Sender: FDA-Public Use
  Company Number: US-NOVEN PHARMACEUTICALS, INC.-US2015000069

PATIENT
  Age: 10 Year
  Sex: Male

DRUGS (1)
  1. DAYTRANA [Suspect]
     Active Substance: METHYLPHENIDATE
     Indication: ATTENTION DEFICIT/HYPERACTIVITY DISORDER
     Dosage: 20 MG, UNK, STOPPED DRUG OVER THE WEEKEND
     Route: 062
     Dates: start: 2011

REACTIONS (3)
  - Application site discolouration [Not Recovered/Not Resolved]
  - Treatment noncompliance [Unknown]
  - Skin discolouration [Not Recovered/Not Resolved]
